FAERS Safety Report 7271246-2 (Version None)
Quarter: 2011Q1

REPORT INFORMATION
  Report Type: 
  Country: None (occurrence: None)
  Receive Date: 20110203
  Receipt Date: 20110121
  Transmission Date: 20110831
  Serious: Yes (Hospitalization)
  Sender: FDA-Public Use
  Company Number: US-ELI_LILLY_AND_COMPANY-US201101005927

PATIENT
  Sex: Male
  Weight: 91.5 kg

DRUGS (18)
  1. CISPLATIN [Suspect]
     Dates: start: 20100819, end: 20110106
  2. METOCLOPRAMIDE [Concomitant]
     Indication: NAUSEA
     Dosage: 10 MG, EVERY 6 HRS
     Route: 048
  3. ASCORBIC ACID [Concomitant]
     Dosage: 500 MG, DAILY (1/D)
  4. LORAZEPAM [Concomitant]
     Indication: ANXIETY
     Dosage: 1 MG, AS NEEDED
     Route: 048
  5. ALLOPURINOL [Concomitant]
     Indication: GOUT
     Dosage: 300 MG, DAILY (1/D)
     Route: 048
  6. PROCHLORPERAZINE [Concomitant]
     Dosage: 10 MG, EVERY 6 HRS
     Route: 048
  7. AMLODIPINE BESYLATE AND VALSARTAN [Concomitant]
     Indication: HYPERTENSION
  8. LORTAB [Concomitant]
     Indication: HEADACHE
     Dosage: 10 MG, EVERY 6 HRS
     Route: 048
  9. GEMCITABINE HYDROCHLORIDE [Suspect]
     Dates: start: 20100819, end: 20110106
  10. FILGRASTIM [Concomitant]
     Indication: NEUTROPENIA
  11. ACETAMINOPHEN [Concomitant]
     Indication: HEADACHE
     Dosage: 500 MG, AS NEEDED
     Route: 048
  12. ONDANSETRON [Concomitant]
     Indication: NAUSEA
     Dosage: 8 MG, EVERY 8 HRS
     Route: 048
  13. DEXAMETHASONE [Concomitant]
     Indication: NAUSEA
  14. MULTI-VITAMIN [Concomitant]
     Dosage: UNK, DAILY (1/D)
     Route: 048
  15. CETUXIMAB [Suspect]
     Indication: BLADDER CANCER
     Dosage: 1040 MG, OTHER
     Route: 042
     Dates: start: 20100819, end: 20110106
  16. CLOBETASOL [Concomitant]
     Indication: DERMATITIS ACNEIFORM
     Dosage: 0.05 D/F, 2/D
     Route: 061
  17. MAGNESIUM [Concomitant]
     Indication: HYPOMAGNESAEMIA
  18. APREPITANT [Concomitant]
     Dosage: 80 MG, UNK

REACTIONS (2)
  - ENTEROCOLITIS INFECTIOUS [None]
  - SYNCOPE [None]
